FAERS Safety Report 21119310 (Version 2)
Quarter: 2022Q3

REPORT INFORMATION
  Report Type: Spontaneous
  Country: AU (occurrence: AU)
  Receive Date: 20220722
  Receipt Date: 20220726
  Transmission Date: 20221027
  Serious: Yes (Life-Threatening, Hospitalization)
  Sender: FDA-Public Use
  Company Number: AU-PFIZER INC-PV202200019096

PATIENT
  Age: 71 Year
  Sex: Female

DRUGS (6)
  1. PACLITAXEL [Suspect]
     Active Substance: PACLITAXEL
     Indication: Fallopian tube cancer stage III
     Dosage: 175 MG/M2, FIRST OF THREE CYCLES
     Dates: start: 20210929
  2. PACLITAXEL [Suspect]
     Active Substance: PACLITAXEL
     Dosage: SECOND CYCLE (CYCLIC)
     Dates: start: 20211021
  3. PACLITAXEL [Suspect]
     Active Substance: PACLITAXEL
     Dosage: THIRD CYCLE (CYCLIC)
     Dates: start: 20211111
  4. DEXAMETHASONE SODIUM PHOSPHATE [Suspect]
     Active Substance: DEXAMETHASONE SODIUM PHOSPHATE
  5. DEXAMETHASONE [Suspect]
     Active Substance: DEXAMETHASONE
  6. CARBOPLATIN [Concomitant]
     Active Substance: CARBOPLATIN

REACTIONS (1)
  - Hypertriglyceridaemia [Recovered/Resolved]
